FAERS Safety Report 5517376-4 (Version None)
Quarter: 2007Q4

REPORT INFORMATION
  Report Type: 
  Country: None (occurrence: None)
  Receive Date: 20071114
  Receipt Date: 20071108
  Transmission Date: 20080405
  Serious: Yes (Hospitalization)
  Sender: FDA-Public Use
  Company Number: BR-MERCK-0711BRA00018

PATIENT

DRUGS (3)
  1. JANUVIA [Suspect]
     Route: 048
  2. METFORMIN [Concomitant]
     Route: 065
  3. INSULIN [Concomitant]
     Route: 065

REACTIONS (1)
  - PANCREATITIS [None]
